FAERS Safety Report 23653674 (Version 2)
Quarter: 2024Q1

REPORT INFORMATION
  Report Type: Spontaneous
  Country: JP (occurrence: JP)
  Receive Date: 20240320
  Receipt Date: 20240325
  Transmission Date: 20240410
  Serious: Yes (Hospitalization, Other)
  Sender: FDA-Public Use
  Company Number: JP-TEVA-VS-3171994

PATIENT
  Age: 74 Year
  Sex: Male

DRUGS (1)
  1. DUTASTERIDE [Suspect]
     Active Substance: DUTASTERIDE
     Indication: Product used for unknown indication
     Dosage: DOSAGE IS UNKNOWN?DUTASTERIDE CAP. 0.5MG AV ^TAKEDA TEVA^
     Route: 048

REACTIONS (2)
  - Oesophageal carcinoma [Unknown]
  - Wrong technique in product usage process [Unknown]
